FAERS Safety Report 9463141 (Version 1)
Quarter: 2013Q3

REPORT INFORMATION
  Report Type: Spontaneous
  Country: US (occurrence: US)
  Receive Date: 20130817
  Receipt Date: 20130817
  Transmission Date: 20140515
  Serious: Yes (Other)
  Sender: FDA-Public Use
  Company Number: US-ROCHE-1260998

PATIENT
  Sex: Female

DRUGS (5)
  1. XOLAIR [Suspect]
     Indication: ASTHMA
     Route: 065
  2. SINGULAIR [Concomitant]
     Route: 065
  3. NOVOLOG [Concomitant]
     Route: 065
  4. QVAR [Concomitant]
     Route: 065
  5. ALBUTEROL INHALER [Concomitant]
     Route: 065

REACTIONS (2)
  - Heart rate increased [Recovered/Resolved]
  - Dizziness [Recovered/Resolved]
